FAERS Safety Report 16747165 (Version 4)
Quarter: 2020Q2

REPORT INFORMATION
  Report Type: Report from Study
  Country: US (occurrence: US)
  Receive Date: 20190827
  Receipt Date: 20200526
  Transmission Date: 20200713
  Serious: No
  Sender: FDA-Public Use
  Company Number: US-SA-2019SA237619

PATIENT
  Age: 19 Year
  Sex: Male

DRUGS (3)
  1. DUPILUMAB [Suspect]
     Active Substance: DUPILUMAB
     Dosage: 300 MG, QOW
     Route: 058
     Dates: start: 201904, end: 201907
  2. DUPILUMAB [Suspect]
     Active Substance: DUPILUMAB
     Dosage: 300 DF, QOW
     Route: 058
     Dates: start: 20190730
  3. DUPILUMAB [Suspect]
     Active Substance: DUPILUMAB
     Indication: ECZEMA
     Dosage: 600 MG, 1X
     Route: 058
     Dates: start: 201904, end: 201904

REACTIONS (7)
  - Needle issue [Not Recovered/Not Resolved]
  - Skin exfoliation [Unknown]
  - Urticaria [Unknown]
  - Injection site pain [Not Recovered/Not Resolved]
  - Injection site urticaria [Not Recovered/Not Resolved]
  - Pruritus [Unknown]
  - Product dose omission [Unknown]

NARRATIVE: CASE EVENT DATE: 201907
